FAERS Safety Report 7917047-0 (Version None)
Quarter: 2011Q4

REPORT INFORMATION
  Report Type: 
  Country: None (occurrence: None)
  Receive Date: 20111116
  Receipt Date: 20111114
  Transmission Date: 20120403
  Serious: Yes (Other)
  Sender: FDA-Public Use
  Company Number: ZA-PFIZER INC-2011280265

PATIENT
  Age: 66 Year
  Sex: Female
  Weight: 60 kg

DRUGS (2)
  1. TRAMADOL HYDROCHLORIDE [Concomitant]
     Dosage: UNK
     Route: 048
  2. VARENICLINE TARTRATE [Suspect]
     Indication: SMOKING CESSATION THERAPY
     Dosage: 1 MG, 2X/DAY (BD)
     Route: 048
     Dates: start: 20111101

REACTIONS (7)
  - INSOMNIA [None]
  - ABNORMAL DREAMS [None]
  - CONSTIPATION [None]
  - DIPLOPIA [None]
  - ABDOMINAL DISTENSION [None]
  - NAUSEA [None]
  - HEADACHE [None]
